FAERS Safety Report 21392618 (Version 2)
Quarter: 2022Q4

REPORT INFORMATION
  Report Type: Report from Study
  Country: MX (occurrence: MX)
  Receive Date: 20220929
  Receipt Date: 20221214
  Transmission Date: 20230112
  Serious: Yes (Death)
  Sender: FDA-Public Use
  Company Number: MX-002147023-NVSC2022MX217652

PATIENT

DRUGS (1)
  1. RUXOLITINIB [Suspect]
     Active Substance: RUXOLITINIB
     Indication: Myelofibrosis
     Dosage: 1 DOSAGE FORM, BID
     Route: 048
     Dates: start: 2013, end: 20220903

REACTIONS (1)
  - Death [Fatal]
